FAERS Safety Report 9847378 (Version 1)
Quarter: 2014Q1

REPORT INFORMATION
  Report Type: Spontaneous
  Country: CA (occurrence: CA)
  Receive Date: 20140127
  Receipt Date: 20140127
  Transmission Date: 20141002
  Serious: Yes (Other)
  Sender: FDA-Public Use
  Company Number: CA-B.I. PHARMACEUTICALS,INC./RIDGEFIELD-2014-BI-02754CN

PATIENT
  Sex: Female

DRUGS (10)
  1. SPIRIVA [Suspect]
     Dosage: 18 MCG
     Route: 055
  2. ASA [Concomitant]
     Route: 065
  3. CALCIUM [Concomitant]
     Route: 065
  4. DIXARIT [Concomitant]
     Route: 065
  5. HYDROCHLOROTHIAZIDE [Concomitant]
     Route: 065
  6. SYMBICORT TURBUHALER [Concomitant]
     Route: 055
  7. VITAMIN A [Concomitant]
     Route: 065
  8. VITAMIN C [Concomitant]
     Route: 065
  9. VITAMIN D [Concomitant]
     Route: 065
  10. VITAMIN E [Concomitant]
     Route: 065

REACTIONS (3)
  - Arrhythmia [Recovered/Resolved]
  - Palpitations [Recovered/Resolved]
  - Dizziness [Recovered/Resolved]
